FAERS Safety Report 7496171-3 (Version None)
Quarter: 2011Q2

REPORT INFORMATION
  Report Type: 
  Country: None (occurrence: None)
  Receive Date: 20110513
  Receipt Date: 20110504
  Transmission Date: 20111010
  Serious: Yes (Congenital Anomaly)
  Sender: FDA-Public Use
  Company Number: 909733

PATIENT
  Sex: Male

DRUGS (1)
  1. METHOTREXATE [Suspect]
     Dosage: TRANSPLACENTAL
     Route: 064

REACTIONS (21)
  - RENAL DISORDER [None]
  - BRONCHOPULMONARY DYSPLASIA [None]
  - POLYDACTYLY [None]
  - MICROGNATHIA [None]
  - CHYLOTHORAX [None]
  - RENAL FAILURE [None]
  - RESPIRATORY DISORDER NEONATAL [None]
  - FOETAL METHOTREXATE SYNDROME [None]
  - DYSPHAGIA [None]
  - INGUINAL HERNIA [None]
  - PREMATURE BABY [None]
  - FALLOT'S TETRALOGY [None]
  - DEAFNESS [None]
  - RETINOPATHY OF PREMATURITY [None]
  - REACTIVE AIRWAYS DYSFUNCTION SYNDROME [None]
  - CYANOSIS [None]
  - TALIPES [None]
  - CONVULSION [None]
  - DRUG EXPOSURE DURING PREGNANCY [None]
  - NEPHROPATHY [None]
  - PERICARDIAL EFFUSION [None]
